FAERS Safety Report 4380892-5 (Version None)
Quarter: 2004Q2

REPORT INFORMATION
  Report Type: 
  Country: None (occurrence: None)
  Receive Date: 20040616
  Receipt Date: 20040604
  Transmission Date: 20050107
  Serious: Yes (Death)
  Sender: FDA-Public Use
  Company Number: GB-JNJFOC-20040305484

PATIENT
  Age: 55 Year
  Sex: Male
  Weight: 64.3 kg

DRUGS (1)
  1. TOPAMAX [Suspect]
     Indication: EPILEPSY
     Dosage: 450 MG, IN 1 DAY; ORAL
     Route: 048
     Dates: start: 20000101, end: 20040321

REACTIONS (4)
  - ACUTE MYOCARDIAL INFARCTION [None]
  - CONVULSION [None]
  - MYOCARDIAL ISCHAEMIA [None]
  - SYNCOPE [None]
